FAERS Safety Report 12040334 (Version 3)
Quarter: 2016Q3

REPORT INFORMATION
  Report Type: Spontaneous
  Country: US (occurrence: US)
  Receive Date: 20160208
  Receipt Date: 20160824
  Transmission Date: 20161109
  Serious: No
  Sender: FDA-Public Use
  Company Number: US-GLAXOSMITHKLINE-US2016011312

PATIENT
  Age: 79 Year
  Sex: Female

DRUGS (14)
  1. CALCIUM [Concomitant]
     Active Substance: CALCIUM
  2. NORVASC [Concomitant]
     Active Substance: AMLODIPINE BESYLATE
  3. ZETIA [Concomitant]
     Active Substance: EZETIMIBE
  4. ADVAIR DISKUS [Suspect]
     Active Substance: FLUTICASONE PROPIONATE\SALMETEROL XINAFOATE
     Indication: EMPHYSEMA
     Dosage: 1 PUFF(S), BID
     Route: 055
     Dates: start: 201512
  5. FOLIC ACID. [Concomitant]
     Active Substance: FOLIC ACID
  6. PREVACID [Concomitant]
     Active Substance: LANSOPRAZOLE
  7. VITAMIN E [Concomitant]
     Active Substance: .ALPHA.-TOCOPHEROL
  8. OMEGA 3 FISH OIL [Concomitant]
     Active Substance: FISH OIL\OMEGA-3 FATTY ACIDS
  9. ASPIRIN. [Concomitant]
     Active Substance: ASPIRIN
  10. METHOTREXATE. [Concomitant]
     Active Substance: METHOTREXATE
  11. COREG [Concomitant]
     Active Substance: CARVEDILOL
  12. MIRALAX [Concomitant]
     Active Substance: POLYETHYLENE GLYCOL 3350
  13. MYRBETRIQ ER [Concomitant]
  14. PRAVACHOL [Concomitant]
     Active Substance: PRAVASTATIN SODIUM

REACTIONS (3)
  - Productive cough [Recovering/Resolving]
  - Blood glucose increased [Unknown]
  - Dysphonia [Recovered/Resolved]

NARRATIVE: CASE EVENT DATE: 201601
